FAERS Safety Report 5295652-0 (Version None)
Quarter: 2007Q2

REPORT INFORMATION
  Report Type: 
  Country: None (occurrence: None)
  Receive Date: 20070410
  Receipt Date: 20070410
  Transmission Date: 20071010
  Serious: No
  Sender: FDA-Public Use
  Company Number: None

PATIENT
  Age: 53 Year
  Sex: Female
  Weight: 100 kg

DRUGS (1)
  1. LIPITOR [Suspect]
     Indication: HYPERLIPIDAEMIA
     Dosage: 40 MG DAILY PO
     Route: 048
     Dates: start: 20040101, end: 20070301

REACTIONS (5)
  - DYSARTHRIA [None]
  - DYSPHONIA [None]
  - DYSPNOEA [None]
  - MUSCULAR WEAKNESS [None]
  - UNEVALUABLE EVENT [None]
